FAERS Safety Report 23467861 (Version 1)
Quarter: 2024Q1

REPORT INFORMATION
  Report Type: Spontaneous
  Country: US (occurrence: US)
  Receive Date: 20240201
  Receipt Date: 20240201
  Transmission Date: 20240410
  Serious: No
  Sender: FDA-Public Use
  Company Number: US-SA-SAC20240129000030

PATIENT
  Sex: Female

DRUGS (4)
  1. DUPIXENT [Suspect]
     Active Substance: DUPILUMAB
     Indication: Dermatitis atopic
     Dosage: 300MG,Q4W
     Route: 058
     Dates: start: 20221028
  2. ALBUTEROL [Concomitant]
     Active Substance: ALBUTEROL
  3. CLOBETASOL [Concomitant]
     Active Substance: CLOBETASOL
  4. DESONIDE [Concomitant]
     Active Substance: DESONIDE

REACTIONS (6)
  - Skin irritation [Unknown]
  - Condition aggravated [Unknown]
  - Rash [Unknown]
  - Discomfort [Unknown]
  - Sleep disorder due to a general medical condition [Unknown]
  - Drug ineffective [Unknown]
